FAERS Safety Report 12651478 (Version 1)
Quarter: 2016Q3

REPORT INFORMATION
  Report Type: Spontaneous
  Country: US (occurrence: US)
  Receive Date: 20160815
  Receipt Date: 20160815
  Transmission Date: 20161109
  Serious: Yes (Hospitalization)
  Sender: FDA-Public Use
  Company Number: US-PERRIGO-16US018971

PATIENT
  Age: 53 Year
  Sex: Female
  Weight: 59 kg

DRUGS (1)
  1. ALLERGY [Suspect]
     Active Substance: UNSPECIFIED INGREDIENT
     Indication: DEPRESSION
     Dosage: 300 MG, QD
     Route: 048
     Dates: start: 2015, end: 20160807

REACTIONS (7)
  - Delusion [Unknown]
  - Paranoia [Unknown]
  - Abnormal behaviour [Unknown]
  - Off label use [Unknown]
  - Hallucination [Unknown]
  - Tremor [Unknown]
  - Dependence [Unknown]

NARRATIVE: CASE EVENT DATE: 2015
